FAERS Safety Report 11859511 (Version 1)
Quarter: 2015Q4

REPORT INFORMATION
  Report Type: Spontaneous
  Country: US (occurrence: US)
  Receive Date: 20151221
  Receipt Date: 20151221
  Transmission Date: 20160305
  Serious: No
  Sender: FDA-Public Use
  Company Number: US-PFIZER INC-2015448506

PATIENT
  Age: 55 Year
  Sex: Male
  Weight: 86 kg

DRUGS (1)
  1. VIAGRA [Suspect]
     Active Substance: SILDENAFIL CITRATE
     Indication: ERECTILE DYSFUNCTION
     Dosage: 50MG TABLET, CUT IN HALF, 25 MG BY MOUTH
     Route: 048

REACTIONS (7)
  - Hyperhidrosis [Unknown]
  - Intentional product misuse [Unknown]
  - Vision blurred [Unknown]
  - Flushing [Unknown]
  - Drug ineffective [Unknown]
  - Stress [Unknown]
  - Fatigue [Unknown]
